FAERS Safety Report 9934825 (Version 1)
Quarter: 2014Q1

REPORT INFORMATION
  Report Type: Spontaneous
  Country: GB (occurrence: GB)
  Receive Date: 20140228
  Receipt Date: 20140228
  Transmission Date: 20141002
  Serious: Yes (Other)
  Sender: FDA-Public Use
  Company Number: GB-GLAXOSMITHKLINE-B0972977A

PATIENT
  Sex: 0

DRUGS (1)
  1. RANITIDINE [Suspect]
     Indication: PRODUCT USED FOR UNKNOWN INDICATION
     Dosage: 150MG SINGLE DOSE
     Route: 065
     Dates: start: 20140109

REACTIONS (3)
  - Pharyngeal oedema [Unknown]
  - Oedema mouth [Not Recovered/Not Resolved]
  - Paraesthesia [Unknown]
